FAERS Safety Report 9082645 (Version 1)
Quarter: 2013Q1

REPORT INFORMATION
  Report Type: Report from Study
  Country: US (occurrence: US)
  Receive Date: 20130130
  Receipt Date: 20130130
  Transmission Date: 20140127
  Serious: Yes (Hospitalization)
  Sender: FDA-Public Use
  Company Number: US-ABBOTT-12P-163-0926776-00

PATIENT
  Age: 18 None
  Sex: Female
  Weight: 63.56 kg

DRUGS (6)
  1. HUMIRA 40 MG/ 0.8 ML PRE-FILLED SYRINGE [Suspect]
     Indication: PSORIASIS
     Route: 058
     Dates: start: 20110901, end: 20120405
  2. PROZAC [Concomitant]
     Indication: ANXIETY
  3. PROZAC [Concomitant]
     Indication: DEPRESSION
  4. SEROQUEL [Concomitant]
     Indication: ANXIETY
  5. SEROQUEL [Concomitant]
     Indication: DEPRESSION
  6. VYVANSE [Concomitant]
     Indication: ATTENTION DEFICIT/HYPERACTIVITY DISORDER

REACTIONS (4)
  - Clostridium difficile infection [Recovering/Resolving]
  - Clostridium difficile infection [Unknown]
  - Psoriasis [Recovering/Resolving]
  - Pigmentation disorder [Not Recovered/Not Resolved]
